FAERS Safety Report 13674754 (Version 1)
Quarter: 2017Q2

REPORT INFORMATION
  Report Type: Report from Study
  Country: US (occurrence: US)
  Receive Date: 20170621
  Receipt Date: 20170621
  Transmission Date: 20170830
  Serious: Yes (Hospitalization)
  Sender: FDA-Public Use
  Company Number: US-BAYER-2017-039769

PATIENT
  Sex: Male

DRUGS (4)
  1. XOFIGO [Suspect]
     Active Substance: RADIUM RA-223 DICHLORIDE
     Indication: PROSTATE CANCER STAGE IV
     Dosage: 118050 ?CI, ONCE
     Route: 042
     Dates: start: 20170127, end: 20170127
  2. XOFIGO [Suspect]
     Active Substance: RADIUM RA-223 DICHLORIDE
     Indication: PROSTATE CANCER STAGE IV
     Dosage: ONCE EVERY 28 DAYS
     Route: 042
     Dates: start: 20161123, end: 20161123
  3. XOFIGO [Suspect]
     Active Substance: RADIUM RA-223 DICHLORIDE
     Indication: PROSTATE CANCER STAGE IV
     Dosage: ONCE EVERY 28 DAYS
     Route: 042
     Dates: start: 20170329, end: 20170329
  4. XOFIGO [Suspect]
     Active Substance: RADIUM RA-223 DICHLORIDE
     Indication: METASTASES TO BONE
     Dosage: ONCE EVERY 28 DAYS
     Route: 042
     Dates: start: 20161228, end: 20161228

REACTIONS (2)
  - Hospitalisation [None]
  - Laboratory test abnormal [None]
